FAERS Safety Report 7835217-7 (Version None)
Quarter: 2011Q4

REPORT INFORMATION
  Report Type: 
  Country: None (occurrence: None)
  Receive Date: 20111024
  Receipt Date: 20111019
  Transmission Date: 20120403
  Serious: Yes (Life-Threatening)
  Sender: FDA-Public Use
  Company Number: US-ASTRAZENECA-2011SE60675

PATIENT
  Age: 48 Year
  Sex: Female
  Weight: 100.7 kg

DRUGS (19)
  1. VALIUM [Concomitant]
  2. CYMBALTA [Concomitant]
  3. BACTRIM [Concomitant]
     Dosage: TID
  4. METFORMIN HCL [Concomitant]
     Indication: DIABETES MELLITUS
  5. SEROQUEL [Suspect]
     Indication: DEPRESSION
     Route: 048
     Dates: start: 20070101
  6. ULTRAM [Concomitant]
  7. SEROQUEL [Suspect]
     Indication: SLEEP DISORDER
     Route: 048
     Dates: start: 20070101
  8. SEROQUEL [Suspect]
     Route: 048
  9. XANAX [Concomitant]
  10. AZAPRO [Concomitant]
  11. SEROQUEL [Suspect]
     Indication: BIPOLAR DISORDER
     Route: 048
     Dates: start: 20070101
  12. SEROQUEL [Suspect]
     Route: 048
  13. SOMA [Concomitant]
     Indication: MUSCLE RELAXANT THERAPY
  14. LYRICA [Concomitant]
  15. LASIX [Concomitant]
  16. PLAQUENIL [Concomitant]
  17. SEROQUEL [Suspect]
     Route: 048
  18. MIRAPEX [Concomitant]
     Dosage: AT NIGHT
  19. FLECTOR [Concomitant]

REACTIONS (5)
  - INSOMNIA [None]
  - DRUG PRESCRIBING ERROR [None]
  - DRUG DOSE OMISSION [None]
  - PULSE ABSENT [None]
  - RESPIRATORY ARREST [None]
